FAERS Safety Report 11493080 (Version 1)
Quarter: 2015Q3

REPORT INFORMATION
  Report Type: Spontaneous
  Country: US (occurrence: US)
  Receive Date: 20150911
  Receipt Date: 20150911
  Transmission Date: 20151125
  Serious: Yes (Other)
  Sender: FDA-Public Use
  Company Number: US-ROCHE-1632375

PATIENT
  Sex: Female

DRUGS (1)
  1. PEGASYS [Suspect]
     Active Substance: PEGINTERFERON ALFA-2A
     Indication: CHRONIC HEPATITIS C
     Route: 058
     Dates: start: 20150605, end: 201509

REACTIONS (5)
  - Dyspnoea [Unknown]
  - Anxiety [Unknown]
  - White blood cell count decreased [Unknown]
  - Fatigue [Unknown]
  - Palpitations [Unknown]
